FAERS Safety Report 18943879 (Version 1)
Quarter: 2021Q1

REPORT INFORMATION
  Report Type: Spontaneous
  Country: GB (occurrence: GB)
  Receive Date: 20210226
  Receipt Date: 20210226
  Transmission Date: 20210420
  Serious: Yes (Other)
  Sender: FDA-Public Use
  Company Number: GB-TEVA-2021-GB-1880982

PATIENT
  Age: 50 Year
  Sex: Female

DRUGS (1)
  1. MORPHINE [Suspect]
     Active Substance: MORPHINE
     Route: 065

REACTIONS (2)
  - Tremor [Recovered/Resolved with Sequelae]
  - Post lumbar puncture syndrome [Recovered/Resolved with Sequelae]

NARRATIVE: CASE EVENT DATE: 20210208
